FAERS Safety Report 7591050-5 (Version None)
Quarter: 2011Q3

REPORT INFORMATION
  Report Type: 
  Country: None (occurrence: None)
  Receive Date: 20110705
  Receipt Date: 20110628
  Transmission Date: 20111222
  Serious: Yes (Other)
  Sender: FDA-Public Use
  Company Number: FR-PFIZER INC-2011091307

PATIENT
  Age: 56 Year
  Sex: Female

DRUGS (3)
  1. FELDENE [Suspect]
     Dosage: UNK
     Route: 048
  2. MEDIATOR [Suspect]
     Indication: WEIGHT DECREASED
     Dosage: 150 MG, 3X/DAY
     Route: 048
     Dates: end: 20080101
  3. LYRICA [Suspect]
     Dosage: UNK
     Route: 048

REACTIONS (6)
  - MITRAL VALVE DISEASE [None]
  - AORTIC STENOSIS [None]
  - AORTIC VALVE DISEASE [None]
  - WEIGHT INCREASED [None]
  - DYSPNOEA [None]
  - OEDEMA PERIPHERAL [None]
